FAERS Safety Report 6873337-4 (Version None)
Quarter: 2010Q3

REPORT INFORMATION
  Report Type: 
  Country: None (occurrence: None)
  Receive Date: 20100723
  Receipt Date: 20090401
  Transmission Date: 20110219
  Serious: No
  Sender: FDA-Public Use
  Company Number: US-PFIZER INC-2008159031

PATIENT
  Sex: Male
  Weight: 97.975 kg

DRUGS (1)
  1. CHANTIX [Suspect]
     Indication: SMOKING CESSATION THERAPY
     Dosage: 1 MG, 2X/DAY
     Dates: start: 20081216

REACTIONS (5)
  - ABNORMAL DREAMS [None]
  - COUGH [None]
  - NERVOUSNESS [None]
  - SCREAMING [None]
  - SOMNAMBULISM [None]
